FAERS Safety Report 5563845-0 (Version None)
Quarter: 2007Q4

REPORT INFORMATION
  Report Type: 
  Country: None (occurrence: None)
  Receive Date: 20071217
  Receipt Date: 20070910
  Transmission Date: 20080405
  Serious: No
  Sender: FDA-Public Use
  Company Number: US-ASTRAZENECA-2007UW21301

PATIENT
  Age: 87 Year
  Sex: Female
  Weight: 44.5 kg

DRUGS (12)
  1. CRESTOR [Suspect]
  2. LOTREL [Concomitant]
  3. PRESAVION WITH LUTEIN [Concomitant]
  4. POTASSIUM CHLORIDE [Concomitant]
  5. ECASA 81 [Concomitant]
  6. METOPROLOL SUCCINATE EXTENDED RELEASE [Concomitant]
  7. CA+ [Concomitant]
  8. VIT D [Concomitant]
  9. CLINDEX [Concomitant]
  10. HYDROCHLOROTHIAZIDE [Concomitant]
  11. CIMETIDINE [Concomitant]
  12. PROTONIX [Concomitant]

REACTIONS (3)
  - GALLBLADDER PAIN [None]
  - SYSTEMIC LUPUS ERYTHEMATOSUS [None]
  - VISUAL ACUITY REDUCED [None]
